FAERS Safety Report 15679953 (Version 5)
Quarter: 2019Q1

REPORT INFORMATION
  Report Type: Report from Study
  Country: None (occurrence: CH)
  Receive Date: 20181203
  Receipt Date: 20190124
  Transmission Date: 20190417
  Serious: Yes (Hospitalization, Other)
  Sender: FDA-Public Use
  Company Number: CH-ABBVIE-18S-151-2567915-00

PATIENT
  Age: 75 Year
  Sex: Female

DRUGS (3)
  1. DUODOPA [Suspect]
     Active Substance: CARBIDOPA\LEVODOPA
     Indication: PARKINSON^S DISEASE
     Route: 050
     Dates: start: 20181002, end: 20181008
  2. DUODOPA [Suspect]
     Active Substance: CARBIDOPA\LEVODOPA
     Dosage: MD 4.5ML;CR 1.8ML/H;ED 0.5ML?BLOCKING TIME 60MIN
     Route: 050
     Dates: start: 20181008, end: 2018
  3. DUODOPA [Suspect]
     Active Substance: CARBIDOPA\LEVODOPA
     Dosage: MD 4.5ML, CR 1.8ML/H, ED 0.5ML BLOCKING TIME 60MIN
     Route: 050
     Dates: start: 2018

REACTIONS (11)
  - Device leakage [Recovered/Resolved]
  - Off label use [Unknown]
  - Decubitus ulcer [Unknown]
  - Intentional medical device removal by patient [Unknown]
  - Pyrexia [Unknown]
  - Device connection issue [Recovered/Resolved]
  - Urinary tract infection [Recovered/Resolved]
  - Staphylococcal infection [Recovered/Resolved]
  - Hallucination [Recovered/Resolved]
  - Pneumonia [Recovering/Resolving]
  - Dehydration [Unknown]

NARRATIVE: CASE EVENT DATE: 2018
